FAERS Safety Report 23750988 (Version 5)
Quarter: 2025Q1

REPORT INFORMATION
  Report Type: Spontaneous
  Country: PL (occurrence: PL)
  Receive Date: 20240417
  Receipt Date: 20250312
  Transmission Date: 20250409
  Serious: Yes (Other)
  Sender: AUROBINDO
  Company Number: PL-EMA-DD-20240401-7482827-170435

PATIENT
  Age: 55 Year
  Sex: Female

DRUGS (13)
  1. LETROZOLE [Suspect]
     Active Substance: LETROZOLE
     Indication: Invasive breast carcinoma
     Route: 065
  2. DOXORUBICIN [Suspect]
     Active Substance: DOXORUBICIN
     Indication: Invasive breast carcinoma
     Route: 065
  3. DOXORUBICIN [Suspect]
     Active Substance: DOXORUBICIN
     Route: 065
  4. DOCETAXEL [Suspect]
     Active Substance: DOCETAXEL
     Indication: Invasive breast carcinoma
     Route: 065
  5. CYCLOPHOSPHAMIDE [Suspect]
     Active Substance: CYCLOPHOSPHAMIDE
     Indication: Product used for unknown indication
     Route: 065
  6. CYCLOPHOSPHAMIDE [Suspect]
     Active Substance: CYCLOPHOSPHAMIDE
     Route: 065
  7. CYCLOPHOSPHAMIDE [Suspect]
     Active Substance: CYCLOPHOSPHAMIDE
     Route: 065
  8. CAPECITABINE [Concomitant]
     Active Substance: CAPECITABINE
     Indication: Product used for unknown indication
     Route: 065
  9. CAPECITABINE [Concomitant]
     Active Substance: CAPECITABINE
     Route: 065
  10. VINORELBINE [Concomitant]
     Active Substance: VINORELBINE TARTRATE
     Indication: Product used for unknown indication
     Route: 065
  11. VINORELBINE [Concomitant]
     Active Substance: VINORELBINE TARTRATE
     Route: 065
  12. METHOTREXATE [Concomitant]
     Active Substance: METHOTREXATE
     Indication: Product used for unknown indication
     Dosage: 10 MILLIGRAM, EVERY WEEK
     Route: 065
  13. PACLITAXEL [Concomitant]
     Active Substance: PACLITAXEL
     Indication: Product used for unknown indication
     Dosage: 80 MG/M2, EVERY WEEK
     Route: 065

REACTIONS (4)
  - Post thrombotic syndrome [Unknown]
  - Deep vein thrombosis [Unknown]
  - Infection [Unknown]
  - Lymphoedema [Unknown]
